FAERS Safety Report 9658350 (Version 2)
Quarter: 2013Q4

REPORT INFORMATION
  Report Type: Spontaneous
  Country: US (occurrence: US)
  Receive Date: 20131030
  Receipt Date: 20131030
  Transmission Date: 20140711
  Serious: No
  Sender: FDA-Public Use
  Company Number: US-PURDUE-USA-2012-0082972

PATIENT
  Sex: Male

DRUGS (1)
  1. OXYCONTIN (NDA 22-272) [Suspect]
     Indication: PAIN
     Dosage: 10 MG, TID
     Dates: start: 201102

REACTIONS (12)
  - Drug withdrawal syndrome [Not Recovered/Not Resolved]
  - Decreased activity [Unknown]
  - Medication residue present [Not Recovered/Not Resolved]
  - Rectal tenesmus [Unknown]
  - Influenza like illness [Not Recovered/Not Resolved]
  - Pyrexia [Not Recovered/Not Resolved]
  - Faeces soft [Not Recovered/Not Resolved]
  - Malaise [Not Recovered/Not Resolved]
  - Lethargy [Unknown]
  - Chills [Not Recovered/Not Resolved]
  - Drug effect decreased [Recovered/Resolved]
  - Constipation [Not Recovered/Not Resolved]
